FAERS Safety Report 7652259-5 (Version None)
Quarter: 2011Q3

REPORT INFORMATION
  Report Type: 
  Country: None (occurrence: None)
  Receive Date: 20110728
  Receipt Date: 20110713
  Transmission Date: 20111222
  Serious: Yes (Other)
  Sender: FDA-Public Use
  Company Number: TPA2011A04018

PATIENT
  Sex: Female

DRUGS (3)
  1. CALCIUM (CALCIUM) [Concomitant]
  2. DEXILANT [Suspect]
     Indication: GASTROOESOPHAGEAL REFLUX DISEASE
     Dosage: 60 MG, 1 IN 1 D, PER ORAL
     Route: 048
     Dates: start: 20110621, end: 20110621
  3. FIGER (POLYCARBOPHIL CALCIUM) [Concomitant]

REACTIONS (3)
  - LOSS OF CONSCIOUSNESS [None]
  - DIARRHOEA [None]
  - DRUG HYPERSENSITIVITY [None]
